FAERS Safety Report 5468898-6 (Version None)
Quarter: 2007Q3

REPORT INFORMATION
  Report Type: 
  Country: None (occurrence: None)
  Receive Date: 20070926
  Receipt Date: 20070924
  Transmission Date: 20080115
  Serious: Yes (Death, Life-Threatening)
  Sender: FDA-Public Use
  Company Number: US-SHR-US-2007-019855

PATIENT
  Age: 74 Year
  Sex: Female
  Weight: 67 kg

DRUGS (6)
  1. ULTRAVIST 300 [Suspect]
     Indication: COMPUTERISED TOMOGRAM
     Dosage: 89 ML, 1 DOSE
     Route: 042
     Dates: start: 20070521, end: 20070521
  2. READI-CAT [Suspect]
     Indication: COMPUTERISED TOMOGRAM
     Dosage: 900 ML, 1 DOSE
     Route: 048
     Dates: start: 20070521, end: 20070521
  3. LEXAPRO [Concomitant]
  4. DIOVAN [Concomitant]
  5. DUONEB [Concomitant]
  6. ALBUTEROL [Concomitant]

REACTIONS (6)
  - CARDIAC VALVE DISEASE [None]
  - DEPRESSED LEVEL OF CONSCIOUSNESS [None]
  - DYSPNOEA [None]
  - ERYTHEMA [None]
  - FEELING HOT [None]
  - SNEEZING [None]
